FAERS Safety Report 8555031 (Version 3)
Quarter: 2012Q4

REPORT INFORMATION
  Report Type: Spontaneous
  Country: BR (occurrence: None)
  Receive Date: 20120503
  Receipt Date: 20120824
  Transmission Date: 20130627
  Serious: Yes (Hospitalization, Other)
  Sender: FDA-Public Use
  Company Number: BR-022894

PATIENT
  Age: 70 Year
  Sex: Male
  Weight: 68.2 kg

DRUGS (1)
  1. CHLORAMBUCIL [Suspect]
     Indication: CHRONIC LYMPHOCYTIC LEUKAEMIA
     Dosage: 10 MG/M2 AT DAYS 1-7 EVERY 28 DAYS
     Route: 048
     Dates: start: 20110330

REACTIONS (4)
  - Pneumonia [None]
  - Dyspnoea [None]
  - Cough [None]
  - Pyrexia [None]
